FAERS Safety Report 5943110-X (Version None)
Quarter: 2008Q4

REPORT INFORMATION
  Report Type: 
  Country: None (occurrence: None)
  Receive Date: 20081103
  Receipt Date: 20081022
  Transmission Date: 20090506
  Serious: Yes (Hospitalization, Other)
  Sender: FDA-Public Use
  Company Number: 2008US002898

PATIENT
  Age: 50 Year
  Sex: Male
  Weight: 136.1 kg

DRUGS (1)
  1. AMEVIVE [Suspect]
     Indication: PSORIASIS
     Dosage: 15 MG WEEKLY, INTRAMUSCULAR
     Route: 030
     Dates: start: 20050927

REACTIONS (3)
  - BASAL CELL CARCINOMA [None]
  - SKIN INFECTION [None]
  - SQUAMOUS CELL CARCINOMA [None]
